FAERS Safety Report 22185304 (Version 2)
Quarter: 2023Q2

REPORT INFORMATION
  Report Type: Spontaneous
  Country: LB (occurrence: LB)
  Receive Date: 20230407
  Receipt Date: 20230413
  Transmission Date: 20230722
  Serious: Yes (Death, Other)
  Sender: FDA-Public Use
  Company Number: LB-ASTELLAS-2023US010918

PATIENT
  Age: 74 Year
  Sex: Male

DRUGS (4)
  1. XTANDI [Suspect]
     Active Substance: ENZALUTAMIDE
     Indication: Prostate cancer
     Route: 048
     Dates: end: 20230325
  2. BISOPROLOL FUMARATE [Concomitant]
     Active Substance: BISOPROLOL FUMARATE
     Indication: Hypertension
     Route: 065
  3. DIAMERIL [Concomitant]
     Indication: Diabetes mellitus
     Dosage: UNK UNK, ONCE DAILY
     Route: 065
  4. Dianorm [Concomitant]
     Indication: Diabetes mellitus
     Dosage: 1000 UNK, TWICE DAILY
     Route: 065

REACTIONS (3)
  - Cardiac arrest [Fatal]
  - Blood glucose decreased [Recovered/Resolved]
  - Loss of consciousness [Recovered/Resolved]

NARRATIVE: CASE EVENT DATE: 20230325
